FAERS Safety Report 4412870-1 (Version None)
Quarter: 2004Q3

REPORT INFORMATION
  Report Type: 
  Country: None (occurrence: None)
  Receive Date: 20040727
  Receipt Date: 20040719
  Transmission Date: 20050211
  Serious: Yes (Death)
  Sender: FDA-Public Use
  Company Number: 2012640

PATIENT
  Age: 31 Year
  Sex: Male

DRUGS (9)
  1. OXYCODONE HCL [Suspect]
  2. METHYLENEDIOXYAMPHETAMINE (METHYLENEDIOXYAMPHETAMINE) [Suspect]
  3. EPHEDRINE SUL CAP [Suspect]
  4. PSEUDOEPHEDRINE HCL [Suspect]
  5. NICOTINE [Suspect]
  6. CAFFEINE (CAFFEINE) [Suspect]
  7. DOXYLAMINE (DOXYLAMINE) [Suspect]
  8. DEXTROMETHORPHAN (DEXTROMETHORPHAN) [Suspect]
  9. IBUPROFEN [Suspect]

REACTIONS (9)
  - ACCIDENTAL OVERDOSE [None]
  - ALCOHOL USE [None]
  - ARTERIOSCLEROSIS [None]
  - BRAIN OEDEMA [None]
  - CARDIOMEGALY [None]
  - CHOLELITHIASIS [None]
  - COMA [None]
  - DRUG SCREEN POSITIVE [None]
  - PULMONARY OEDEMA [None]
